FAERS Safety Report 16262022 (Version 5)
Quarter: 2020Q1

REPORT INFORMATION
  Report Type: Spontaneous
  Country: FR (occurrence: FR)
  Receive Date: 20190501
  Receipt Date: 20200212
  Transmission Date: 20200409
  Serious: Yes (Other)
  Sender: FDA-Public Use
  Company Number: FR-GILEAD-2019-0405344

PATIENT
  Age: 27 Year
  Sex: Male
  Weight: 72 kg

DRUGS (2)
  1. TRUVADA [Suspect]
     Active Substance: EMTRICITABINE\TENOFOVIR DISOPROXIL FUMARATE
     Dosage: TOOK 2 TABLETS OVER THE COURSE OF THE LAST MONTH
     Route: 048
  2. TRUVADA [Suspect]
     Active Substance: EMTRICITABINE\TENOFOVIR DISOPROXIL FUMARATE
     Indication: PROPHYLAXIS AGAINST HIV INFECTION
     Dosage: 200MG/245MG
     Route: 048
     Dates: start: 20161229, end: 201903

REACTIONS (4)
  - Genotype drug resistance test positive [Unknown]
  - Acute HIV infection [Not Recovered/Not Resolved]
  - Product dose omission [Recovered/Resolved]
  - Treatment noncompliance [Unknown]

NARRATIVE: CASE EVENT DATE: 201903
